FAERS Safety Report 6013375-7 (Version None)
Quarter: 2008Q4

REPORT INFORMATION
  Report Type: 
  Country: None (occurrence: None)
  Receive Date: 20081126
  Receipt Date: 20080625
  Transmission Date: 20090506
  Serious: Yes (Hospitalization)
  Sender: FDA-Public Use
  Company Number: 173432USA

PATIENT
  Age: 17 Year
  Sex: Female

DRUGS (1)
  1. CALCITRIOL [Suspect]
     Dosage: ORAL
     Route: 048

REACTIONS (1)
  - DRUG INEFFECTIVE [None]
